FAERS Safety Report 20322798 (Version 1)
Quarter: 2022Q1

REPORT INFORMATION
  Report Type: Spontaneous
  Country: US (occurrence: None)
  Receive Date: 20220110
  Receipt Date: 20220110
  Transmission Date: 20220423
  Serious: No
  Sender: FDA-Public Use
  Company Number: None

PATIENT
  Age: 43 Year
  Sex: Female
  Weight: 88.45 kg

DRUGS (4)
  1. PRIVIGEN [Suspect]
     Active Substance: HUMAN IMMUNOGLOBULIN G
  2. Sodium Chloride 0.9% 500ML [Concomitant]
  3. Diphenhydramine 25MG Caps [Concomitant]
  4. MAPAP 500MG TABS [Concomitant]

REACTIONS (6)
  - Infusion related reaction [None]
  - Pruritus [None]
  - Rash [None]
  - Rash [None]
  - Blood pressure increased [None]
  - Heart rate increased [None]

NARRATIVE: CASE EVENT DATE: 20220102
